FAERS Safety Report 4778793-3 (Version None)
Quarter: 2005Q3

REPORT INFORMATION
  Report Type: 
  Country: None (occurrence: None)
  Receive Date: 20050922
  Receipt Date: 20050913
  Transmission Date: 20060218
  Serious: Yes (Hospitalization)
  Sender: FDA-Public Use
  Company Number: 2002066782

PATIENT
  Age: 44 Year
  Sex: Male
  Weight: 128 kg

DRUGS (7)
  1. LIPITOR [Suspect]
     Indication: HYPERLIPIDAEMIA
     Dosage: 40 MG (1 IN 1 D), ORAL
     Route: 048
     Dates: start: 20011219, end: 20020912
  2. AVANDIA [Concomitant]
  3. ALTACE [Concomitant]
  4. GLUCONORM (GLIBENCLAMIDE) [Concomitant]
  5. VALSARTAN [Concomitant]
  6. DIAMICRON (GLICLAZIDE) [Concomitant]
  7. HYDROCHLOROTHIAZIDE [Concomitant]

REACTIONS (3)
  - DIABETES MELLITUS INADEQUATE CONTROL [None]
  - LEIOMYOSARCOMA [None]
  - VISION BLURRED [None]
